FAERS Safety Report 6741797-5 (Version None)
Quarter: 2010Q2

REPORT INFORMATION
  Report Type: 
  Country: None (occurrence: None)
  Receive Date: 20100526
  Receipt Date: 20100518
  Transmission Date: 20101027
  Serious: Yes (Other)
  Sender: FDA-Public Use
  Company Number: US-ROCHE-704462

PATIENT
  Sex: Female

DRUGS (8)
  1. AVASTIN [Suspect]
     Dosage: DRUG ONSET DATE: ON AND OFF SINCE 2008.
     Route: 042
     Dates: start: 20080101
  2. XELODA [Suspect]
     Dosage: FREQUENCY: BID X 14 DAYS.
     Route: 048
     Dates: start: 20081201
  3. ADRIAMYCIN PFS [Concomitant]
  4. TAXOTERE [Concomitant]
  5. AROMASIN [Concomitant]
  6. ZOFRAN [Concomitant]
  7. COMPAZINE [Concomitant]
  8. MEGACE [Concomitant]
     Dosage: DRUG: MEGACE ES.

REACTIONS (1)
  - OSTEONECROSIS OF JAW [None]
